FAERS Safety Report 8792719 (Version 2)
Quarter: 2012Q4

REPORT INFORMATION
  Report Type: 
  Country: US (occurrence: US)
  Receive Date: 20120918
  Receipt Date: 20121031
  Transmission Date: 20130627
  Serious: Yes (Hospitalization, Disabling)
  Sender: FDA-Public Use
  Company Number: US-GLAXOSMITHKLINE-A0993553A

PATIENT
  Age: 71 Year
  Sex: Female
  Weight: 49.2 kg

DRUGS (1)
  1. ALKERAN [Suspect]
     Indication: MULTIPLE MYELOMA
     Dosage: 6MG per day
     Route: 048
     Dates: start: 20111202, end: 20120626

REACTIONS (2)
  - Renal impairment [Recovered/Resolved]
  - Hypercalcaemia [Recovered/Resolved]
